FAERS Safety Report 6905592-6 (Version None)
Quarter: 2010Q3

REPORT INFORMATION
  Report Type: 
  Country: None (occurrence: None)
  Receive Date: 20100804
  Receipt Date: 20100727
  Transmission Date: 20110219
  Serious: Yes (Other)
  Sender: FDA-Public Use
  Company Number: AR-BRISTOL-MYERS SQUIBB COMPANY-15212608

PATIENT
  Age: 60 Year
  Sex: Male

DRUGS (1)
  1. SAXAGLIPTIN [Suspect]

REACTIONS (1)
  - PANCREATITIS ACUTE [None]
